FAERS Safety Report 8785687 (Version 1)
Quarter: 2012Q4

REPORT INFORMATION
  Report Type: 
  Country: CH (occurrence: CH)
  Receive Date: 20120914
  Receipt Date: 20120914
  Transmission Date: 20130627
  Serious: Yes (Death, Other)
  Sender: FDA-Public Use
  Company Number: CH-CELGENEUS-151-50794-12090663

PATIENT
  Age: 66 Year
  Sex: Male

DRUGS (2)
  1. VIDAZA [Suspect]
     Indication: MDS
     Route: 065
     Dates: start: 200806
  2. VIDAZA [Suspect]
     Route: 065
     Dates: end: 201112

REACTIONS (4)
  - Death [Fatal]
  - Blood product transfusion dependent [Unknown]
  - Leukopenia [Unknown]
  - Thrombocytopenia [Unknown]
